FAERS Safety Report 9188689 (Version 1)
Quarter: 2013Q1

REPORT INFORMATION
  Report Type: Spontaneous
  Country: FR (occurrence: FR)
  Receive Date: 20130325
  Receipt Date: 20130325
  Transmission Date: 20140127
  Serious: Yes (Other)
  Sender: FDA-Public Use
  Company Number: FR-SHIRE-ALL1-2013-01647

PATIENT
  Age: 60 Year
  Sex: 0

DRUGS (1)
  1. XAGRID [Suspect]
     Indication: THROMBOCYTOPENIA
     Dosage: UNK, UNKNOWN
     Route: 048

REACTIONS (1)
  - Cardiac valve disease [Unknown]
